FAERS Safety Report 8236260-9 (Version None)
Quarter: 2012Q1

REPORT INFORMATION
  Report Type: 
  Country: None (occurrence: None)
  Receive Date: 20120326
  Receipt Date: 20120326
  Transmission Date: 20120608
  Serious: Yes (Other)
  Sender: FDA-Public Use
  Company Number: None

PATIENT
  Age: 44 Year
  Sex: Female

DRUGS (3)
  1. JUNEL 1.5/30 [Suspect]
     Indication: CONTRACEPTION
     Dosage: 1 PO QD STARTED CURRENT PACK 3/16/12  WE HAVE HISTORY OF GOING BACK TO 12/11
     Route: 048
  2. ARITHROMYCIN [Concomitant]
  3. VENTOLIN HFA [Concomitant]

REACTIONS (1)
  - METRORRHAGIA [None]
